FAERS Safety Report 8299468-2 (Version None)
Quarter: 2012Q2

REPORT INFORMATION
  Report Type: 
  Country: None (occurrence: None)
  Receive Date: 20120419
  Receipt Date: 20120412
  Transmission Date: 20120825
  Serious: Yes (Other)
  Sender: FDA-Public Use
  Company Number: US-GILEAD-2012-0053642

PATIENT
  Age: 75 Year
  Sex: Female

DRUGS (2)
  1. RANEXA [Suspect]
     Indication: PRODUCT USED FOR UNKNOWN INDICATION
     Dosage: 500 MG, UNK
     Route: 048
     Dates: end: 20120401
  2. RANEXA [Suspect]
     Dosage: 1000 MG, UNK
     Route: 048
     Dates: start: 20120401

REACTIONS (1)
  - BLOOD GLUCOSE DECREASED [None]
